FAERS Safety Report 20383894 (Version 2)
Quarter: 2022Q2

REPORT INFORMATION
  Report Type: Spontaneous
  Country: PL (occurrence: PL)
  Receive Date: 20220127
  Receipt Date: 20220605
  Transmission Date: 20220720
  Serious: Yes (Hospitalization, Other)
  Sender: FDA-Public Use
  Company Number: PL-BRISTOL-MYERS SQUIBB COMPANY-BMS-2022-011249

PATIENT
  Age: 81 Year
  Sex: Female

DRUGS (2)
  1. ELIQUIS [Suspect]
     Active Substance: APIXABAN
     Indication: Thrombosis prophylaxis
     Route: 048
  2. ENOXAPARIN SODIUM [Concomitant]
     Active Substance: ENOXAPARIN SODIUM
     Indication: Product used for unknown indication
     Route: 065

REACTIONS (13)
  - Loss of consciousness [Recovered/Resolved]
  - Fall [Unknown]
  - Haematoma [Recovered/Resolved]
  - Nausea [Unknown]
  - Decreased appetite [Unknown]
  - Dizziness [Unknown]
  - Atrial fibrillation [Unknown]
  - Headache [Not Recovered/Not Resolved]
  - Helicobacter infection [Unknown]
  - Vertigo [Not Recovered/Not Resolved]
  - Abdominal pain upper [Unknown]
  - Head injury [Unknown]
  - Treatment noncompliance [Unknown]

NARRATIVE: CASE EVENT DATE: 20220101
